FAERS Safety Report 6566553-2 (Version None)
Quarter: 2010Q1

REPORT INFORMATION
  Report Type: 
  Country: None (occurrence: None)
  Receive Date: 20100202
  Receipt Date: 20100121
  Transmission Date: 20100710
  Serious: Yes (Hospitalization)
  Sender: FDA-Public Use
  Company Number: ES-PFIZER INC-2010008175

PATIENT
  Age: 73 Year
  Sex: Female

DRUGS (6)
  1. ALDACTONE [Suspect]
     Indication: CARDIAC FAILURE CONGESTIVE
     Dosage: 50 MG, 1X/DAY
     Route: 048
     Dates: start: 20090601, end: 20090826
  2. NAPROXEN AND NAPROXEN SODIUM [Suspect]
     Indication: ARTHRALGIA
     Dosage: 500 MG, 3X/DAY
     Route: 048
     Dates: start: 20090816, end: 20090826
  3. AMERIDE [Concomitant]
     Indication: CARDIAC FAILURE CONGESTIVE
     Dosage: UNK
     Route: 048
     Dates: end: 20090819
  4. ADIRO [Concomitant]
     Indication: PROPHYLAXIS
     Dosage: 100 MG, 1X/DAY
     Route: 048
     Dates: start: 20080101
  5. ENALAPRIL [Concomitant]
     Indication: CARDIAC FAILURE CONGESTIVE
     Dosage: 20 MG, 1X/DAY
     Route: 048
     Dates: start: 20080101
  6. ALLOPURINOL [Concomitant]
     Indication: HYPERURICAEMIA
     Dosage: UNK
     Dates: start: 20090601, end: 20090826

REACTIONS (3)
  - DUODENAL ULCER HAEMORRHAGE [None]
  - HYPERKALAEMIA [None]
  - RENAL FAILURE ACUTE [None]
